FAERS Safety Report 7430197-0 (Version None)
Quarter: 2011Q2

REPORT INFORMATION
  Report Type: 
  Country: None (occurrence: None)
  Receive Date: 20110421
  Receipt Date: 20100723
  Transmission Date: 20111010
  Serious: No
  Sender: FDA-Public Use
  Company Number: US-ASTRAZENECA-2010SE34502

PATIENT
  Age: 85 Year
  Sex: Male

DRUGS (4)
  1. FLOMAX [Concomitant]
  2. COUMADIN [Concomitant]
  3. CRESTOR [Suspect]
     Indication: HYPERCHOLESTEROLAEMIA
     Route: 048
  4. TOPROL-XL [Suspect]
     Indication: ATRIAL FIBRILLATION
     Route: 048
     Dates: start: 20050101

REACTIONS (2)
  - CATARACT [None]
  - URINARY TRACT INFECTION [None]
